FAERS Safety Report 7197563-2 (Version None)
Quarter: 2010Q4

REPORT INFORMATION
  Report Type: 
  Country: None (occurrence: None)
  Receive Date: 20101227
  Receipt Date: 20101217
  Transmission Date: 20110411
  Serious: Yes (Hospitalization)
  Sender: FDA-Public Use
  Company Number: GB-ASTRAZENECA-2010SE59984

PATIENT

DRUGS (1)
  1. LOSEC MUPS [Suspect]
     Route: 048

REACTIONS (3)
  - GASTROINTESTINAL TUBE INSERTION [None]
  - MALAISE [None]
  - WRONG TECHNIQUE IN DRUG USAGE PROCESS [None]
